FAERS Safety Report 4765049-8 (Version None)
Quarter: 2005Q3

REPORT INFORMATION
  Report Type: 
  Country: None (occurrence: None)
  Receive Date: 20050907
  Receipt Date: 20050824
  Transmission Date: 20060218
  Serious: Yes (Hospitalization)
  Sender: FDA-Public Use
  Company Number: 216726

PATIENT
  Age: 52 Year
  Sex: Male
  Weight: 103 kg

DRUGS (6)
  1. RITUXAN [Suspect]
     Indication: NEPHROPATHY
     Dosage: INTRAVENOUS
     Route: 042
  2. LIPITOR [Concomitant]
  3. FUROSEMIDE [Concomitant]
  4. ATENOLOL [Concomitant]
  5. VITAMINS (VITAMINS NOS) [Concomitant]
  6. METOLAZONE [Concomitant]

REACTIONS (6)
  - ATELECTASIS [None]
  - HYPOTENSION [None]
  - PLEURAL EFFUSION [None]
  - PNEUMONIA BACTERIAL [None]
  - PNEUMONITIS [None]
  - VIRAL INFECTION [None]
